FAERS Safety Report 7953410-X (Version None)
Quarter: 2011Q4

REPORT INFORMATION
  Report Type: 
  Country: None (occurrence: None)
  Receive Date: 20111202
  Receipt Date: 20111124
  Transmission Date: 20120403
  Serious: Yes (Death, Other)
  Sender: FDA-Public Use
  Company Number: JP-ELI_LILLY_AND_COMPANY-JP201111007394

PATIENT
  Age: 39 Year
  Sex: Male

DRUGS (9)
  1. SULPIRIDE [Concomitant]
     Dosage: 200 MG, UNK
     Route: 048
     Dates: start: 20110920
  2. ZYPREXA [Suspect]
     Indication: INSOMNIA
     Dosage: 20 MG, UNK
     Route: 048
     Dates: start: 20110802
  3. REFLEX [Concomitant]
     Indication: DEPRESSIVE SYMPTOM
     Dosage: 45 MG, UNK
     Route: 048
     Dates: start: 20110622
  4. ZOLPIDEM [Concomitant]
     Indication: INSOMNIA
     Dosage: 5 MG, UNK
     Route: 048
     Dates: start: 20090131
  5. SEROQUEL [Concomitant]
     Indication: INSOMNIA
     Dosage: 100 MG, UNK
     Route: 048
     Dates: start: 20111107
  6. SENIRAN [Concomitant]
     Indication: DEPRESSIVE SYMPTOM
     Dosage: 20 MG, UNK
     Route: 048
     Dates: start: 20091124
  7. HALCION [Concomitant]
     Indication: INSOMNIA
     Dosage: 0.25 MG, UNK
     Route: 048
     Dates: start: 20100119
  8. ZYPREXA [Suspect]
     Dosage: 5 MG, UNK
     Route: 048
     Dates: start: 20111115
  9. PAXIL [Concomitant]
     Indication: SOCIAL PHOBIA
     Dosage: 40 MG, UNK
     Route: 048
     Dates: start: 20110706

REACTIONS (6)
  - OFF LABEL USE [None]
  - TACHYCARDIA [None]
  - NEUROLEPTIC MALIGNANT SYNDROME [None]
  - SUDDEN DEATH [None]
  - MUSCLE RIGIDITY [None]
  - TREMOR [None]
